FAERS Safety Report 8600572-7 (Version None)
Quarter: 2012Q3

REPORT INFORMATION
  Report Type: 
  Country: None (occurrence: None)
  Receive Date: 20120803
  Receipt Date: 20120723
  Transmission Date: 20120928
  Serious: Yes (Hospitalization)
  Sender: FDA-Public Use
  Company Number: AUR-APL-2012-02914

PATIENT
  Age: 40 Year
  Sex: Male
  Weight: 85 kg

DRUGS (4)
  1. MIRTAZAPINE [Suspect]
     Indication: PRODUCT USED FOR UNKNOWN INDICATION
     Dates: start: 20120418
  2. PROPRANOLOL [Concomitant]
  3. IBUPROFEN [Concomitant]
  4. SERTRALINE HYDROCHLORIDE [Concomitant]

REACTIONS (4)
  - BRAIN OEDEMA [None]
  - HYPONATRAEMIA [None]
  - OVERDOSE [None]
  - CONVULSION [None]
